FAERS Safety Report 4338006-3 (Version None)
Quarter: 2004Q2

REPORT INFORMATION
  Report Type: 
  Country: None (occurrence: None)
  Receive Date: 20040407
  Receipt Date: 20040318
  Transmission Date: 20050107
  Serious: Yes (Hospitalization)
  Sender: FDA-Public Use
  Company Number: FR_040303748

PATIENT
  Age: 25 Year
  Sex: Female

DRUGS (1)
  1. PROZAC [Suspect]

REACTIONS (2)
  - INFLAMMATION [None]
  - PYREXIA [None]
